FAERS Safety Report 11402850 (Version 1)
Quarter: 2015Q3

REPORT INFORMATION
  Report Type: Spontaneous
  Country: US (occurrence: US)
  Receive Date: 20150821
  Receipt Date: 20150821
  Transmission Date: 20151125
  Serious: No
  Sender: FDA-Public Use
  Company Number: US-ROCHE-1283923

PATIENT
  Sex: Male

DRUGS (3)
  1. PEGASYS [Suspect]
     Active Substance: PEGINTERFERON ALFA-2A
     Indication: HEPATITIS C
     Route: 065
     Dates: start: 20130823
  2. TELAPREVIR [Concomitant]
     Active Substance: TELAPREVIR
  3. COPEGUS [Suspect]
     Active Substance: RIBAVIRIN
     Indication: HEPATITIS C
     Route: 065
     Dates: start: 20130823

REACTIONS (5)
  - Scab [Unknown]
  - Fatigue [Unknown]
  - Anorectal discomfort [Recovering/Resolving]
  - Pruritus [Unknown]
  - Haemorrhoids [Recovering/Resolving]
